FAERS Safety Report 11383291 (Version 2)
Quarter: 2015Q3

REPORT INFORMATION
  Report Type: Spontaneous
  Country: US (occurrence: US)
  Receive Date: 20150814
  Receipt Date: 20150818
  Transmission Date: 20151125
  Serious: Yes (Hospitalization, Other)
  Sender: FDA-Public Use
  Company Number: US-009507513-1206USA03491

PATIENT
  Sex: Female
  Weight: 50.79 kg

DRUGS (3)
  1. FOSAMAX [Suspect]
     Active Substance: ALENDRONATE SODIUM
     Indication: OSTEOPOROSIS
     Dosage: 70 MG, UNK
     Route: 048
     Dates: start: 200305, end: 20100424
  2. ALENDRONATE SODIUM. [Suspect]
     Active Substance: ALENDRONATE SODIUM
     Indication: OSTEOPOROSIS
     Dosage: 70 MG, UNKNOWN
     Route: 048
     Dates: start: 20030825, end: 200910
  3. BONIVA [Suspect]
     Active Substance: IBANDRONATE SODIUM
     Indication: OSTEOPOROSIS
     Dosage: UNK, UNKNOWN
     Route: 048
     Dates: start: 20100416, end: 20100603

REACTIONS (17)
  - Vertigo positional [Unknown]
  - Impaired healing [Unknown]
  - Sciatica [Unknown]
  - Nephrolithiasis [Unknown]
  - House dust allergy [Unknown]
  - Carpal tunnel syndrome [Unknown]
  - X-ray limb abnormal [Unknown]
  - Haematuria [Unknown]
  - Femur fracture [Unknown]
  - Procedural complication [Unknown]
  - Femur fracture [Recovering/Resolving]
  - Dyslipidaemia [Unknown]
  - Fall [Recovering/Resolving]
  - Essential hypertension [Unknown]
  - Supraventricular extrasystoles [Unknown]
  - Spinal osteoarthritis [Unknown]
  - Nasal disorder [Unknown]

NARRATIVE: CASE EVENT DATE: 200508
